FAERS Safety Report 4299566-4 (Version None)
Quarter: 2004Q1

REPORT INFORMATION
  Report Type: 
  Country: None (occurrence: None)
  Receive Date: 20040217
  Receipt Date: 20040204
  Transmission Date: 20041129
  Serious: Yes (Other)
  Sender: FDA-Public Use
  Company Number: 2003036896

PATIENT
  Age: 61 Year
  Sex: Male

DRUGS (3)
  1. DILANTIN [Suspect]
     Indication: SIMPLE PARTIAL SEIZURES
     Dosage: 600 MG TID
  2. PHENOBARBITAL TAB [Concomitant]
  3. METOPROLOL SUCCINATE [Concomitant]

REACTIONS (1)
  - SIMPLE PARTIAL SEIZURES [None]
